FAERS Safety Report 16046624 (Version 1)
Quarter: 2019Q1

REPORT INFORMATION
  Report Type: Other
  Country: IT (occurrence: IT)
  Receive Date: 20190307
  Receipt Date: 20190307
  Transmission Date: 20190418
  Serious: Yes (Life-Threatening, Hospitalization, Other)
  Sender: FDA-Public Use
  Company Number: IT-APOTEX-2019AP008535

PATIENT

DRUGS (35)
  1. OLANZAPINE. [Suspect]
     Active Substance: OLANZAPINE
     Dosage: 2.5 MG, QD (2.5 MG, ONCE DAILY (QD) HS)
     Route: 065
     Dates: start: 201501, end: 201503
  2. OLANZAPINE. [Suspect]
     Active Substance: OLANZAPINE
     Dosage: 5 MG, QD (5.0 MILLIGRAMS, AT NIGHT)
     Route: 065
     Dates: start: 201503, end: 2015
  3. OLANZAPINE. [Suspect]
     Active Substance: OLANZAPINE
     Dosage: 2.5 MG
     Route: 065
  4. RIVOTRIL [Suspect]
     Active Substance: CLONAZEPAM
     Indication: PRODUCT USED FOR UNKNOWN INDICATION
     Dosage: 15 DROPS
     Route: 065
     Dates: start: 2015, end: 2015
  5. TRIAZOLAM. [Suspect]
     Active Substance: TRIAZOLAM
     Indication: PRODUCT USED FOR UNKNOWN INDICATION
     Dosage: 0.25 MG, HS
     Route: 065
  6. CARDIOASPIRIN [Suspect]
     Active Substance: ASPIRIN
     Dosage: UNK UNK, QD
     Route: 065
  7. TIROSINT [Suspect]
     Active Substance: LEVOTHYROXINE SODIUM
     Indication: HYPOTHYROIDISM
     Dosage: 25 MG
     Route: 065
  8. RIVOTRIL [Suspect]
     Active Substance: CLONAZEPAM
     Dosage: 1.80 MG 18 DROPS
     Route: 065
     Dates: start: 2015, end: 2015
  9. TRITTICO [Suspect]
     Active Substance: TRAZODONE HYDROCHLORIDE
     Dosage: 60 MG/ML, 15 DROPS, AT NIGHT,
     Route: 065
  10. LORAZEPAM. [Suspect]
     Active Substance: LORAZEPAM
     Dosage: 68 DF,
     Route: 065
  11. QUETIAPINE. [Suspect]
     Active Substance: QUETIAPINE
     Dosage: 25 MG, ONCE DAILY (QD), AT NIGHT
     Route: 048
  12. RIVOTRIL [Suspect]
     Active Substance: CLONAZEPAM
     Dosage: 15 GTT, QD
     Route: 065
  13. RIVOTRIL [Suspect]
     Active Substance: CLONAZEPAM
     Dosage: 1.8 MG, 28 GTT, AT NIGHT
     Route: 065
  14. RIVOTRIL [Suspect]
     Active Substance: CLONAZEPAM
     Dosage: 10 DROPS
     Route: 065
  15. LEVOTHYROXINE SODIUM. [Suspect]
     Active Substance: LEVOTHYROXINE SODIUM
     Indication: PRODUCT USED FOR UNKNOWN INDICATION
     Route: 065
  16. LORAZEPAM. [Suspect]
     Active Substance: LORAZEPAM
     Dosage: 68 GTT, DIALY
     Route: 065
  17. BRILIQUE [Suspect]
     Active Substance: TICAGRELOR
     Dosage: 90 MG, 2X/DAY (BID)
     Route: 048
  18. QUETIAPINE. [Suspect]
     Active Substance: QUETIAPINE
     Indication: PRODUCT USED FOR UNKNOWN INDICATION
     Dosage: DAILY DOSE 25 MG
     Route: 048
  19. PANTOPRAZOLE [Suspect]
     Active Substance: PANTOPRAZOLE
     Indication: PRODUCT USED FOR UNKNOWN INDICATION
     Dosage: 20 MG, QD
     Route: 048
  20. LOPRESOR                           /00376902/ [Suspect]
     Active Substance: METOPROLOL TARTRATE
     Indication: PRODUCT USED FOR UNKNOWN INDICATION
     Dosage: 25 MG, UNK
     Route: 048
  21. LORAZEPAM. [Suspect]
     Active Substance: LORAZEPAM
     Dosage: 0.75 MG 15 DROPS
     Route: 065
     Dates: start: 2015, end: 2015
  22. RIVOTRIL [Suspect]
     Active Substance: CLONAZEPAM
     Dosage: 18 GTT, ONCE DAILY (QD)
     Route: 065
  23. TRITTICO [Suspect]
     Active Substance: TRAZODONE HYDROCHLORIDE
     Dosage: 13 GTT, HS
     Route: 065
     Dates: start: 201501, end: 201507
  24. CARDIOASPIRIN [Suspect]
     Active Substance: ASPIRIN
     Indication: PRODUCT USED FOR UNKNOWN INDICATION
     Dosage: UNK UNK, QD
     Route: 065
  25. BRILIQUE [Suspect]
     Active Substance: TICAGRELOR
     Indication: PRODUCT USED FOR UNKNOWN INDICATION
     Dosage: 90 MG, BID
     Route: 048
  26. OLANZAPINE. [Suspect]
     Active Substance: OLANZAPINE
     Indication: PRODUCT USED FOR UNKNOWN INDICATION
     Dosage: 5 MG, UNK (5 MG, HS)
     Route: 065
     Dates: start: 201503
  27. RIVOTRIL [Suspect]
     Active Substance: CLONAZEPAM
     Dosage: 18 GTT, QD
     Route: 065
  28. LORAZEPAM. [Suspect]
     Active Substance: LORAZEPAM
     Indication: PRODUCT USED FOR UNKNOWN INDICATION
     Dosage: 20 GTT, UNK
     Route: 065
  29. LORAZEPAM. [Suspect]
     Active Substance: LORAZEPAM
     Dosage: 1 MG, 20 DROPS AT NIGHT
     Route: 065
     Dates: start: 2015, end: 2015
  30. TRIAZOLAM. [Suspect]
     Active Substance: TRIAZOLAM
     Dosage: 0.25 MG, ONCE DAILY (QD),HS
     Route: 065
  31. ATORVASTATIN [Suspect]
     Active Substance: ATORVASTATIN
     Indication: PRODUCT USED FOR UNKNOWN INDICATION
     Dosage: 40 MG, QD
     Route: 048
  32. TRITTICO [Suspect]
     Active Substance: TRAZODONE HYDROCHLORIDE
     Indication: PRODUCT USED FOR UNKNOWN INDICATION
     Dosage: 10 GTT, UNK
     Route: 065
  33. TRITTICO [Suspect]
     Active Substance: TRAZODONE HYDROCHLORIDE
     Dosage: 10 DROPS
     Route: 065
     Dates: start: 2015
  34. LORAZEPAM. [Suspect]
     Active Substance: LORAZEPAM
     Dosage: 0.9 MG 18 DROPS
     Route: 065
     Dates: start: 2015, end: 2015
  35. LORAZEPAM. [Suspect]
     Active Substance: LORAZEPAM
     Dosage: 1 MG, 20 DROPS AT NIGHT
     Route: 065
     Dates: start: 2015, end: 2015

REACTIONS (12)
  - Hypothyroidism [Unknown]
  - Weight increased [Unknown]
  - Malaise [Unknown]
  - Epistaxis [Unknown]
  - Myocardial ischaemia [Unknown]
  - Feeling cold [Unknown]
  - Dyspnoea [Unknown]
  - Fatigue [Unknown]
  - Electrocardiogram QT prolonged [Unknown]
  - Suicide attempt [Unknown]
  - Discomfort [Unknown]
  - Electrocardiogram T wave inversion [Unknown]

NARRATIVE: CASE EVENT DATE: 201507
